FAERS Safety Report 6765802-5 (Version None)
Quarter: 2010Q2

REPORT INFORMATION
  Report Type: 
  Country: None (occurrence: None)
  Receive Date: 20100611
  Receipt Date: 20100531
  Transmission Date: 20101027
  Serious: Yes (Hospitalization)
  Sender: FDA-Public Use
  Company Number: HK-ROCHE-690826

PATIENT
  Age: 66 Year
  Sex: Female
  Weight: 44 kg

DRUGS (4)
  1. ACTEMRA [Suspect]
     Indication: RHEUMATOID ARTHRITIS
     Route: 042
     Dates: start: 20100106, end: 20100106
  2. METHOTREXATE [Concomitant]
     Indication: RHEUMATOID ARTHRITIS
     Route: 048
  3. PENTOXIFYLLINE [Concomitant]
     Route: 048
  4. NIFEDIPINE [Concomitant]
     Dosage: FREQUENCY: TDS, PRN
     Route: 048

REACTIONS (1)
  - DIARRHOEA [None]
